FAERS Safety Report 8423168 (Version 3)
Quarter: 2012Q4

REPORT INFORMATION
  Report Type: 
  Country: JP (occurrence: JP)
  Receive Date: 20120223
  Receipt Date: 20120918
  Transmission Date: 20130627
  Serious: Yes (Other)
  Sender: FDA-Public Use
  Company Number: JP-PFIZER INC-2012042568

PATIENT

DRUGS (2)
  1. SOLU-CORTEF [Suspect]
     Dosage: UNK
     Route: 042
  2. REMICADE [Concomitant]
     Indication: CROHN^S DISEASE

REACTIONS (1)
  - Chorioretinopathy [Unknown]
